FAERS Safety Report 6966467 (Version 3)
Quarter: 2013Q4

REPORT INFORMATION
  Report Type: Spontaneous
  Country: CA (occurrence: CA)
  Receive Date: 20090410
  Receipt Date: 20131122
  Transmission Date: 20140711
  Serious: Yes (Other)
  Sender: FDA-Public Use
  Company Number: CA-B.I. PHARMACEUTICALS,INC./RIDGEFIELD-2009-BP-01020BP

PATIENT
  Age: 34 Year
  Sex: Female

DRUGS (6)
  1. MIRAPEX [Suspect]
     Indication: PERIODIC LIMB MOVEMENT DISORDER
     Route: 048
     Dates: start: 200504, end: 20080427
  2. SEROQUEL [Concomitant]
     Indication: ANXIETY
     Route: 048
  3. EFFEXOR [Concomitant]
     Indication: DEPRESSION
     Route: 048
  4. CELEXA [Concomitant]
     Indication: DEPRESSION
     Route: 048
     Dates: start: 200704, end: 200710
  5. CLONAZEPAM [Concomitant]
     Indication: ANXIETY
     Dosage: 0.5 MG
     Route: 048
     Dates: start: 200711, end: 200804
  6. GABAPENTIN [Concomitant]
     Indication: MOVEMENT DISORDER
     Route: 048

REACTIONS (14)
  - Suicidal ideation [Recovered/Resolved]
  - Impulsive behaviour [Recovered/Resolved]
  - Obsessive-compulsive disorder [Recovered/Resolved]
  - Sleep disorder [Recovered/Resolved]
  - Somnolence [Recovered/Resolved]
  - Affect lability [Recovered/Resolved]
  - Memory impairment [Unknown]
  - Hyperphagia [Recovered/Resolved]
  - Compulsive sexual behaviour [Recovered/Resolved]
  - Compulsive shopping [Recovered/Resolved]
  - Obsessive-compulsive disorder [Recovered/Resolved]
  - Sleep apnoea syndrome [Recovered/Resolved]
  - Psychomotor hyperactivity [Unknown]
  - Insomnia [Unknown]
